FAERS Safety Report 20380294 (Version 1)
Quarter: 2022Q1

REPORT INFORMATION
  Report Type: Spontaneous
  Country: EG (occurrence: EG)
  Receive Date: 20220126
  Receipt Date: 20220126
  Transmission Date: 20220423
  Serious: Yes (Life-Threatening)
  Sender: FDA-Public Use
  Company Number: EG-SUN PHARMACEUTICAL INDUSTRIES LTD-2022R1-324185

PATIENT
  Age: 38 Week

DRUGS (8)
  1. EPINEPHRINE [Suspect]
     Active Substance: EPINEPHRINE
     Indication: Cardiogenic shock
     Dosage: UNK (1MG/KG/MIN)
     Route: 065
  2. DOBUTAMINE [Suspect]
     Active Substance: DOBUTAMINE HYDROCHLORIDE
     Indication: Cardiogenic shock
     Dosage: UNK (15 MICROG/KG/MIN)
     Route: 065
  3. NOREPINEPHRINE [Suspect]
     Active Substance: NOREPINEPHRINE
     Indication: Cardiogenic shock
     Dosage: UNK (0.5MG/KG/MIN)
     Route: 065
  4. NOREPINEPHRINE [Suspect]
     Active Substance: NOREPINEPHRINE
     Dosage: UNK (1 MICROG/KG/MIN)
     Route: 065
  5. TERLIPRESSIN [Suspect]
     Active Substance: TERLIPRESSIN
     Indication: Cardiogenic shock
     Dosage: UNK (20 MICROG/KG/HOUR)
     Route: 065
  6. DOPAMINE [Suspect]
     Active Substance: DOPAMINE HYDROCHLORIDE
     Indication: Cardiogenic shock
     Dosage: UNK (10ML/KG BOLUS)
     Route: 065
  7. DOPAMINE [Suspect]
     Active Substance: DOPAMINE HYDROCHLORIDE
     Dosage: UNK (15 MICROG/KG/MIN)
     Route: 065
  8. MILRINONE [Suspect]
     Active Substance: MILRINONE
     Indication: Cardiogenic shock
     Dosage: UNK (25 MICROG/KG/MIN)
     Route: 065

REACTIONS (2)
  - Drug ineffective [Unknown]
  - Pulmonary hypertension [Recovering/Resolving]
